FAERS Safety Report 26006228 (Version 1)
Quarter: 2025Q4

REPORT INFORMATION
  Report Type: Spontaneous
  Country: US (occurrence: None)
  Receive Date: 20251105
  Receipt Date: 20251105
  Transmission Date: 20260117
  Serious: Yes (Hospitalization)
  Sender: FDA-CTU
  Company Number: None

PATIENT
  Sex: Female

DRUGS (3)
  1. CAPECITABINE [Suspect]
     Active Substance: CAPECITABINE
     Indication: Bile duct cancer
     Dosage: 2300 MG TWICE A DAY ORAL
     Route: 048
     Dates: start: 20250910
  2. CAPECITABINE [Suspect]
     Active Substance: CAPECITABINE
     Indication: Bile duct cancer
     Dosage: 2300 MG TWICE A DAY ORAL
     Route: 048
     Dates: start: 20250910
  3. ONDANSETRON ODT UD [Concomitant]

REACTIONS (3)
  - Diarrhoea [None]
  - Colitis [None]
  - Therapy change [None]
